FAERS Safety Report 5772702-6 (Version None)
Quarter: 2008Q2

REPORT INFORMATION
  Report Type: 
  Country: None (occurrence: None)
  Receive Date: 20080601
  Receipt Date: 20080303
  Transmission Date: 20081010
  Serious: No
  Sender: FDA-Public Use
  Company Number: US200803000696

PATIENT
  Age: 39 Year
  Sex: Female
  Weight: 73.5 kg

DRUGS (5)
  1. BYETTA [Suspect]
     Indication: TYPE 2 DIABETES MELLITUS
     Dosage: 5 UG, 2/D, SUBCUTANEOUS : 10 UG, 2/D, SUBCUTANEOUS
     Route: 058
     Dates: start: 20070901, end: 20071001
  2. BYETTA [Suspect]
     Indication: TYPE 2 DIABETES MELLITUS
     Dosage: 5 UG, 2/D, SUBCUTANEOUS : 10 UG, 2/D, SUBCUTANEOUS
     Route: 058
     Dates: start: 20071001, end: 20080302
  3. BYETTA [Suspect]
     Indication: TYPE 2 DIABETES MELLITUS
     Dosage: 5 UG, 2/D, SUBCUTANEOUS
     Route: 058
     Dates: start: 20080303
  4. PAXIL CR [Concomitant]
  5. ADDERALL 10 [Concomitant]

REACTIONS (5)
  - CHILLS [None]
  - ERYTHEMA [None]
  - SKIN EXFOLIATION [None]
  - URTICARIA [None]
  - WOUND DRAINAGE [None]
